FAERS Safety Report 10029095 (Version 1)
Quarter: 2014Q1

REPORT INFORMATION
  Report Type: Spontaneous
  Country: US (occurrence: US)
  Receive Date: 20140321
  Receipt Date: 20140321
  Transmission Date: 20141002
  Serious: No
  Sender: FDA-Public Use
  Company Number: US-LUNDBECK-DKLU1097906

PATIENT
  Sex: Male

DRUGS (2)
  1. SABRIL (FOR ORAL SOLUTION) [Suspect]
     Indication: PRODUCT USED FOR UNKNOWN INDICATION
  2. SABRIL (FOR ORAL SOLUTION) [Suspect]

REACTIONS (5)
  - Crying [Unknown]
  - Somnolence [Unknown]
  - Agitation [Unknown]
  - Diarrhoea [Unknown]
  - Irritability [Unknown]
